FAERS Safety Report 9996594 (Version 3)
Quarter: 2014Q1

REPORT INFORMATION
  Report Type: Spontaneous
  Country: GB (occurrence: GB)
  Receive Date: 20140311
  Receipt Date: 20140321
  Transmission Date: 20141002
  Serious: Yes (Other)
  Sender: FDA-Public Use
  Company Number: GB-VERTEX PHARMACEUTICALS INC-2014-001192

PATIENT
  Age: 27 Year
  Sex: Male
  Weight: 60 kg

DRUGS (3)
  1. INCIVO [Suspect]
     Indication: HEPATITIS C
     Dosage: 1125 MG, BID
     Route: 048
     Dates: start: 20130212, end: 20130429
  2. VIRAFERONPEG [Suspect]
     Indication: HEPATITIS C
     Dosage: DOSE ^100^
     Route: 058
     Dates: start: 20130212, end: 20131008
  3. REBETOL [Suspect]
     Indication: HEPATITIS C
     Dosage: UNK
     Route: 065
     Dates: start: 20130212, end: 20131008

REACTIONS (2)
  - Infertility [Unknown]
  - Viral load increased [Unknown]
